FAERS Safety Report 7652260-1 (Version None)
Quarter: 2011Q3

REPORT INFORMATION
  Report Type: 
  Country: None (occurrence: None)
  Receive Date: 20110728
  Receipt Date: 20110721
  Transmission Date: 20111222
  Serious: Yes (Other)
  Sender: FDA-Public Use
  Company Number: PD 147

PATIENT

DRUGS (2)
  1. LEVETIRACETAM [Suspect]
  2. LEVETIRACETAM [Suspect]
     Indication: EPILEPSY

REACTIONS (6)
  - HEADACHE [None]
  - AMNESIA [None]
  - AGGRESSION [None]
  - DEPRESSION [None]
  - VISION BLURRED [None]
  - MOOD SWINGS [None]
